FAERS Safety Report 4828933-2 (Version None)
Quarter: 2005Q4

REPORT INFORMATION
  Report Type: 
  Country: None (occurrence: None)
  Receive Date: 20051014
  Receipt Date: 20050712
  Transmission Date: 20060501
  Serious: No
  Sender: FDA-Public Use
  Company Number: 2005SP001861

PATIENT
  Age: 86 Year
  Sex: Male
  Weight: 86.1834 kg

DRUGS (5)
  1. LUNESTA [Suspect]
     Indication: INSOMNIA
     Dosage: 2 MG;HS;ORAL   3 MG;X1;ORAL   6 MG;HS;ORAL
     Route: 048
     Dates: start: 20050708, end: 20050710
  2. LUNESTA [Suspect]
     Indication: INSOMNIA
     Dosage: 2 MG;HS;ORAL   3 MG;X1;ORAL   6 MG;HS;ORAL
     Route: 048
     Dates: start: 20050710, end: 20050710
  3. LUNESTA [Suspect]
     Indication: INSOMNIA
     Dosage: 2 MG;HS;ORAL   3 MG;X1;ORAL   6 MG;HS;ORAL
     Route: 048
     Dates: start: 20050711, end: 20050711
  4. HYDROCHLOROTHIAZIDE [Concomitant]
  5. PRINIVIL [Concomitant]

REACTIONS (4)
  - ABDOMINAL PAIN [None]
  - CONSTIPATION [None]
  - DRUG INEFFECTIVE [None]
  - INITIAL INSOMNIA [None]
